FAERS Safety Report 6156498-4 (Version None)
Quarter: 2009Q2

REPORT INFORMATION
  Report Type: 
  Country: None (occurrence: None)
  Receive Date: 20090416
  Receipt Date: 20080530
  Transmission Date: 20091009
  Serious: Yes (Other)
  Sender: FDA-Public Use
  Company Number: US-ASTRAZENECA-2008UW04663

PATIENT
  Age: 541 Month
  Sex: Female
  Weight: 89.9 kg

DRUGS (15)
  1. SEROQUEL [Suspect]
     Indication: ANXIETY
     Route: 048
     Dates: start: 20050101, end: 20060201
  2. SEROQUEL [Suspect]
     Indication: SCHIZOPHRENIA
     Route: 048
     Dates: start: 20050101, end: 20060201
  3. SEROQUEL [Suspect]
     Indication: DEPRESSION
     Route: 048
     Dates: start: 20050101, end: 20060201
  4. METFORMIN HCL [Concomitant]
  5. RISPERDAL [Concomitant]
  6. ZOLOFT [Concomitant]
  7. ENALAPRIL [Concomitant]
  8. LIPITOR [Concomitant]
  9. ASPIRIN [Concomitant]
  10. GLIPIZIDE [Concomitant]
  11. INSULIN NOVOLOG [Concomitant]
  12. LANTUS [Concomitant]
  13. ATROVENT [Concomitant]
  14. ALBUTEROL [Concomitant]
  15. ASPIRIN [Concomitant]

REACTIONS (13)
  - ASTHENIA [None]
  - BLOOD GLUCOSE INCREASED [None]
  - CHEST PAIN [None]
  - DIABETES MELLITUS [None]
  - DIABETIC KETOACIDOSIS [None]
  - DIABETIC RETINOPATHY [None]
  - DYSPNOEA [None]
  - HAEMOPTYSIS [None]
  - HYPERLIPIDAEMIA [None]
  - OBESITY [None]
  - PAIN [None]
  - SARCOIDOSIS [None]
  - VISUAL ACUITY REDUCED [None]
